FAERS Safety Report 4398024-6 (Version None)
Quarter: 2004Q3

REPORT INFORMATION
  Report Type: 
  Country: None (occurrence: None)
  Receive Date: 20040713
  Receipt Date: 20040628
  Transmission Date: 20050211
  Serious: No
  Sender: FDA-Public Use
  Company Number: 2004CG01268

PATIENT
  Age: 30 Year
  Sex: Male

DRUGS (2)
  1. EMLA [Suspect]
     Indication: LOCAL ANAESTHESIA
     Dosage: 6.25 G ONCE TP
     Route: 061
     Dates: start: 20040101, end: 20040101
  2. DAFALGAN CODEINE [Concomitant]

REACTIONS (2)
  - COORDINATION ABNORMAL [None]
  - OVERDOSE [None]
